FAERS Safety Report 6531485-2 (Version None)
Quarter: 2010Q1

REPORT INFORMATION
  Report Type: 
  Country: None (occurrence: None)
  Receive Date: 20100108
  Receipt Date: 20091230
  Transmission Date: 20100710
  Serious: No
  Sender: FDA-Public Use
  Company Number: US-BAYER-201010003BCC

PATIENT
  Age: 75 Year
  Sex: Female
  Weight: 57 kg

DRUGS (9)
  1. ALEVE [Suspect]
     Indication: ARTHRITIS
     Dosage: TOTAL DAILY DOSE: 220 MG  UNIT DOSE: 220 MG
     Route: 048
     Dates: start: 20090601, end: 20090601
  2. ALEVE [Suspect]
     Dosage: TOTAL DAILY DOSE: 220 MG  UNIT DOSE: 220 MG
     Route: 048
     Dates: start: 20091230
  3. ASPIRIN [Suspect]
     Indication: ISCHAEMIC HEART DISEASE PROPHYLAXIS
     Dosage: TOTAL DAILY DOSE: 81 MG  UNIT DOSE: 81 MG
     Route: 048
     Dates: start: 19670101
  4. ALLEGRA [Concomitant]
     Route: 065
  5. XANAX [Concomitant]
     Route: 065
  6. BENICAR [Concomitant]
     Route: 065
  7. NORVASC [Concomitant]
     Route: 065
  8. AMARYL [Concomitant]
     Route: 065
  9. DARVOCET [Concomitant]
     Route: 065

REACTIONS (2)
  - BLOOD PRESSURE INCREASED [None]
  - BURNING SENSATION [None]
